FAERS Safety Report 8545096-0 (Version None)
Quarter: 2012Q3

REPORT INFORMATION
  Report Type: 
  Country: None (occurrence: None)
  Receive Date: 20120727
  Receipt Date: 20120718
  Transmission Date: 20120928
  Serious: Yes (Other)
  Sender: FDA-Public Use
  Company Number: US-PERRIGO-12US006389

PATIENT
  Sex: Female

DRUGS (2)
  1. POLYETHYLENE GLYCOL [Suspect]
     Indication: CONSTIPATION
     Dosage: UNK
     Route: 048
     Dates: start: 20091006, end: 20120601
  2. DULCOLAX [Suspect]
     Indication: CONSTIPATION
     Dosage: UNK
     Route: 065
     Dates: start: 20070101

REACTIONS (5)
  - ARTHROPATHY [None]
  - MYOCARDIAL INFARCTION [None]
  - ARTHRITIS INFECTIVE [None]
  - DRUG INEFFECTIVE [None]
  - STAPHYLOCOCCAL INFECTION [None]
